FAERS Safety Report 15549886 (Version 1)
Quarter: 2018Q4

REPORT INFORMATION
  Report Type: Spontaneous
  Country: IE (occurrence: IE)
  Receive Date: 20181018
  Receipt Date: 20181018
  Transmission Date: 20190205
  Serious: Yes (Life-Threatening, Other)
  Sender: FDA-Public Use
  Company Number: None

PATIENT
  Age: 28 Year
  Sex: Female
  Weight: 56.7 kg

DRUGS (1)
  1. CHANTIX [Suspect]
     Active Substance: VARENICLINE TARTRATE
     Indication: SMOKING CESSATION THERAPY
     Dosage: ?          QUANTITY:2 DF DOSAGE FORM;?
     Route: 048
     Dates: start: 20181001, end: 20181013

REACTIONS (12)
  - Intentional overdose [None]
  - Anger [None]
  - Alcohol use [None]
  - Mood swings [None]
  - Loss of consciousness [None]
  - Fatigue [None]
  - Panic attack [None]
  - Intentional self-injury [None]
  - Abnormal dreams [None]
  - Malaise [None]
  - Abnormal behaviour [None]
  - Skin laceration [None]

NARRATIVE: CASE EVENT DATE: 20181013
